FAERS Safety Report 6992928-3 (Version None)
Quarter: 2010Q3

REPORT INFORMATION
  Report Type: 
  Country: None (occurrence: None)
  Receive Date: 20100917
  Receipt Date: 20100909
  Transmission Date: 20110219
  Serious: Yes (Death)
  Sender: FDA-Public Use
  Company Number: GB-NAPPMUNDI-GBR-2010-0007034

PATIENT
  Sex: Male

DRUGS (6)
  1. BUTRANS TRANSDERMAL PATCH [Suspect]
     Indication: ARTHRALGIA
     Dosage: 10 MCG, Q1H
     Route: 062
  2. BUTRANS TRANSDERMAL PATCH [Suspect]
     Dosage: 5 MCG, Q1H
     Route: 062
     Dates: start: 20100201
  3. ACETAMINOPHEN AND CODEINE PHOSPHATE [Concomitant]
     Indication: ARTHRALGIA
     Dosage: UNK
     Route: 048
  4. VALSARTAN [Concomitant]
  5. DOXAZOSIN MESYLATE [Concomitant]
  6. EZETIMIBE [Concomitant]

REACTIONS (2)
  - ASPHYXIA [None]
  - COMPLETED SUICIDE [None]
